FAERS Safety Report 10070057 (Version 3)
Quarter: 2014Q2

REPORT INFORMATION
  Report Type: Spontaneous
  Country: TR (occurrence: TR)
  Receive Date: 20140410
  Receipt Date: 20140509
  Transmission Date: 20141212
  Serious: Yes (Other)
  Sender: FDA-Public Use
  Company Number: TR-VERTEX PHARMACEUTICALS INC-2014-001792

PATIENT
  Age: 58 Year
  Sex: Female

DRUGS (7)
  1. INCIVO [Suspect]
     Indication: CHRONIC HEPATITIS C
     Route: 048
  2. INCIVO [Suspect]
     Route: 048
  3. PEGINTERFERON ALFA [Suspect]
     Indication: CHRONIC HEPATITIS C
     Dosage: UNK
  4. PEGINTERFERON ALFA [Suspect]
     Dosage: DOSAGE FORM: UNSPECIFIED
     Route: 065
  5. RIBAVIRIN [Suspect]
     Indication: CHRONIC HEPATITIS C
     Dosage: UNK
  6. RIBAVIRIN [Suspect]
     Dosage: UNK
  7. RIBAVIRIN [Suspect]
     Dosage: DOSAGE FORM: UNSPECIFIED
     Route: 065

REACTIONS (3)
  - Leukopenia [Unknown]
  - Anaemia [Unknown]
  - Rash [Recovering/Resolving]
